FAERS Safety Report 8126113-9 (Version None)
Quarter: 2012Q1

REPORT INFORMATION
  Report Type: 
  Country: None (occurrence: None)
  Receive Date: 20120209
  Receipt Date: 20120202
  Transmission Date: 20120608
  Serious: Yes (Other)
  Sender: FDA-Public Use
  Company Number: PHHY2012CA009357

PATIENT
  Sex: Male

DRUGS (4)
  1. ACETAMINOPHEN [Concomitant]
     Dosage: 2 DF, Q3H
  2. SUNITINIB MALATE [Concomitant]
     Route: 048
     Dates: start: 20100424
  3. ANALGESICS [Concomitant]
  4. ZOMETA [Suspect]
     Indication: METASTATIC RENAL CELL CARCINOMA
     Dosage: 4 MG, EVERY 4 WEEKS
     Route: 042
     Dates: start: 20100421, end: 20110618

REACTIONS (12)
  - HYPERHIDROSIS [None]
  - VENOUS VALVE RUPTURED [None]
  - PYREXIA [None]
  - NAUSEA [None]
  - HYPERSENSITIVITY [None]
  - INFLUENZA [None]
  - GASTROINTESTINAL DISORDER [None]
  - CONSTIPATION [None]
  - GENERAL PHYSICAL HEALTH DETERIORATION [None]
  - FEELING ABNORMAL [None]
  - BLOOD TEST ABNORMAL [None]
  - TREMOR [None]
